FAERS Safety Report 5097479-1 (Version None)
Quarter: 2006Q3

REPORT INFORMATION
  Report Type: 
  Country: None (occurrence: None)
  Receive Date: 20060901
  Receipt Date: 20060814
  Transmission Date: 20061208
  Serious: Yes (Hospitalization, Other)
  Sender: FDA-Public Use
  Company Number: US_010463397

PATIENT
  Age: 86 Year
  Sex: Female
  Weight: 50.9 kg

DRUGS (4)
  1. EVISTA [Suspect]
     Indication: OSTEOPOROSIS
     Dosage: 60 MG, DAILY (1/D(, ORAL
     Route: 048
     Dates: start: 20000401
  2. FORTEO [Suspect]
     Indication: OSTEOPOROSIS
     Dosage: 20 UG, SUBCUTANEOUS
     Route: 058
     Dates: start: 20050215, end: 20050301
  3. CALCIUM (CALCIUM) [Concomitant]
  4. FORTEO PEN,250MCG/ML (3ML) (FORTEO PEN 250MCG/ML(3ML)) PEN,DISPOSABLE [Concomitant]

REACTIONS (18)
  - BACK PAIN [None]
  - BLOOD HOMOCYSTEINE INCREASED [None]
  - CERVICAL VERTEBRAL FRACTURE [None]
  - CONDITION AGGRAVATED [None]
  - DIZZINESS [None]
  - DRUG INEFFECTIVE [None]
  - FALL [None]
  - FEELING ABNORMAL [None]
  - GAIT DISTURBANCE [None]
  - GASTROOESOPHAGEAL REFLUX DISEASE [None]
  - HEAD INJURY [None]
  - HEADACHE [None]
  - HIP FRACTURE [None]
  - HYPERTENSION [None]
  - NAUSEA [None]
  - OSTEOPOROSIS [None]
  - PHARMACEUTICAL PRODUCT COMPLAINT [None]
  - WEIGHT INCREASED [None]
